FAERS Safety Report 9319583 (Version 12)
Quarter: 2016Q4

REPORT INFORMATION
  Report Type: Spontaneous
  Country: US (occurrence: US)
  Receive Date: 20130530
  Receipt Date: 20161214
  Transmission Date: 20170207
  Serious: Yes (Hospitalization, Other)
  Sender: FDA-Public Use
  Company Number: US-GLAXOSMITHKLINE-A1009358A

PATIENT
  Age: 36 Year
  Sex: Female

DRUGS (18)
  1. FLOLAN [Suspect]
     Active Substance: EPOPROSTENOL SODIUM
     Dosage: 47 DF, CO
     Route: 042
  2. FLOLAN [Suspect]
     Active Substance: EPOPROSTENOL SODIUM
     Dosage: 47 DF, CO
     Route: 042
     Dates: start: 20110926
  3. FLOLAN [Suspect]
     Active Substance: EPOPROSTENOL SODIUM
     Indication: PULMONARY ARTERIAL HYPERTENSION
     Dosage: UNK, U
  4. OPSUMIT [Suspect]
     Active Substance: MACITENTAN
     Indication: PRODUCT USED FOR UNKNOWN INDICATION
  5. COUMADIN [Concomitant]
     Active Substance: WARFARIN SODIUM
  6. SILDENAFIL. [Concomitant]
     Active Substance: SILDENAFIL
  7. FLOLAN [Suspect]
     Active Substance: EPOPROSTENOL SODIUM
     Indication: PULMONARY ARTERIAL HYPERTENSION
     Dosage: 47 DF, CO
     Route: 042
     Dates: start: 20110926
  8. FLOLAN [Suspect]
     Active Substance: EPOPROSTENOL SODIUM
     Dosage: UNK
  9. FLOLAN [Suspect]
     Active Substance: EPOPROSTENOL SODIUM
     Dosage: 47 DF, CO
     Route: 042
  10. FLOLAN [Suspect]
     Active Substance: EPOPROSTENOL SODIUM
     Dosage: 48 DF, CO
     Dates: start: 20110926
  11. REVATIO [Concomitant]
     Active Substance: SILDENAFIL CITRATE
  12. FLOLAN [Suspect]
     Active Substance: EPOPROSTENOL SODIUM
     Dosage: UNK
     Dates: start: 20110927
  13. XARELTO [Concomitant]
     Active Substance: RIVAROXABAN
  14. SILDENAFIL CITRATE. [Concomitant]
     Active Substance: SILDENAFIL CITRATE
  15. FLOLAN [Suspect]
     Active Substance: EPOPROSTENOL SODIUM
     Dosage: UNK
     Dates: start: 20110927
  16. FLOLAN [Suspect]
     Active Substance: EPOPROSTENOL SODIUM
     Dosage: UNK, CO
     Dates: start: 20110926
  17. FLOLAN [Suspect]
     Active Substance: EPOPROSTENOL SODIUM
     Dosage: UNK
     Route: 042
     Dates: start: 20110927
  18. FLOLAN [Suspect]
     Active Substance: EPOPROSTENOL SODIUM
     Dosage: UNK, CO
     Route: 042
     Dates: start: 20110926

REACTIONS (15)
  - Device related infection [Unknown]
  - Catheter site erythema [Unknown]
  - Fluid overload [Unknown]
  - Catheterisation cardiac [Unknown]
  - Bronchitis [Unknown]
  - Catheter site swelling [Unknown]
  - Heart rate increased [Unknown]
  - Cough [Unknown]
  - Headache [Unknown]
  - Infection [Not Recovered/Not Resolved]
  - Skin infection [Unknown]
  - Hospitalisation [Unknown]
  - Central venous catheterisation [Unknown]
  - Cardiac procedure complication [Unknown]
  - Catheter site pain [Unknown]

NARRATIVE: CASE EVENT DATE: 201305
